FAERS Safety Report 20712944 (Version 1)
Quarter: 2022Q2

REPORT INFORMATION
  Report Type: Spontaneous
  Country: HR (occurrence: HR)
  Receive Date: 20220415
  Receipt Date: 20220415
  Transmission Date: 20220721
  Serious: Yes (Other)
  Sender: FDA-Public Use
  Company Number: None

PATIENT
  Age: 18 Year
  Sex: Female

DRUGS (4)
  1. PRAZINE (PROMAZINE HYDROCHLORIDE) [Suspect]
     Active Substance: PROMAZINE HYDROCHLORIDE
     Dosage: 125MG, FREQUENCY TIME 1DAYS, DURATION 1DAYS
     Route: 048
     Dates: start: 20220108, end: 20220108
  2. ARIPIPRAZOLE [Suspect]
     Active Substance: ARIPIPRAZOLE
     Dosage: UNKNOWN, DURATION 1DAYS
     Route: 048
     Dates: start: 20220108, end: 20220108
  3. ZOLOFT [Suspect]
     Active Substance: SERTRALINE HYDROCHLORIDE
     Dosage: 500MG, FREQUENCY TIME 1DAYS, DURATION 1DAYS
     Route: 048
     Dates: start: 20220108, end: 20220108
  4. NORMABEL [Suspect]
     Active Substance: DIAZEPAM
     Dosage: 25MG, FREQUENCY TIME 1DAYS,DURATION 1DAYS
     Route: 048
     Dates: start: 20220108, end: 20220108

REACTIONS (3)
  - Intentional overdose [Unknown]
  - No adverse event [Unknown]
  - Suicide attempt [Unknown]

NARRATIVE: CASE EVENT DATE: 20220108
